FAERS Safety Report 21851573 (Version 2)
Quarter: 2023Q1

REPORT INFORMATION
  Report Type: Spontaneous
  Country: CA (occurrence: None)
  Receive Date: 20230112
  Receipt Date: 20230213
  Transmission Date: 20230418
  Serious: Yes (Other)
  Sender: FDA-Public Use
  Company Number: CA-ROCHE-3260271

PATIENT
  Sex: Male

DRUGS (8)
  1. OCRELIZUMAB [Suspect]
     Active Substance: OCRELIZUMAB
     Indication: Relapsing-remitting multiple sclerosis
     Route: 042
  2. OCRELIZUMAB [Suspect]
     Active Substance: OCRELIZUMAB
     Route: 042
  3. COMIRNATY [Suspect]
     Active Substance: TOZINAMERAN
     Indication: COVID-19 immunisation
     Route: 030
  4. ASPIRIN [Concomitant]
     Active Substance: ASPIRIN
  5. CELEBREX [Concomitant]
     Active Substance: CELECOXIB
  6. HYDROMORPHONE [Concomitant]
     Active Substance: HYDROMORPHONE
  7. LYRICA [Concomitant]
     Active Substance: PREGABALIN
  8. TYLENOL [Concomitant]
     Active Substance: ACETAMINOPHEN

REACTIONS (12)
  - Blister [Not Recovered/Not Resolved]
  - Fatigue [Not Recovered/Not Resolved]
  - Hemiparesis [Not Recovered/Not Resolved]
  - Herpes zoster [Not Recovered/Not Resolved]
  - Memory impairment [Not Recovered/Not Resolved]
  - Migraine [Not Recovered/Not Resolved]
  - Multiple sclerosis relapse [Not Recovered/Not Resolved]
  - Oral herpes [Not Recovered/Not Resolved]
  - Pruritus [Not Recovered/Not Resolved]
  - Skin irritation [Not Recovered/Not Resolved]
  - Skin ulcer [Not Recovered/Not Resolved]
  - Somnolence [Not Recovered/Not Resolved]
